FAERS Safety Report 8001461-1 (Version None)
Quarter: 2011Q4

REPORT INFORMATION
  Report Type: 
  Country: None (occurrence: None)
  Receive Date: 20111222
  Receipt Date: 20111212
  Transmission Date: 20120403
  Serious: Yes (Hospitalization, Disabling, Other)
  Sender: FDA-Public Use
  Company Number: US-JNJFOC-20111007970

PATIENT
  Sex: Male
  Weight: 83.01 kg

DRUGS (13)
  1. REMICADE [Suspect]
     Indication: CROHN'S DISEASE
     Route: 042
     Dates: start: 20080729
  2. QUESTRAN [Concomitant]
     Route: 065
  3. REMICADE [Suspect]
     Route: 042
     Dates: start: 20081101, end: 20111013
  4. PENTASA [Concomitant]
     Indication: CROHN'S DISEASE
     Route: 048
     Dates: start: 20111015
  5. DICYCLOMINE [Concomitant]
     Route: 065
  6. REMICADE [Suspect]
     Indication: COLITIS
     Route: 042
     Dates: start: 20080729
  7. REMICADE [Suspect]
     Route: 042
     Dates: start: 20081101, end: 20111013
  8. IMURAN [Concomitant]
     Indication: CROHN'S DISEASE
     Route: 065
  9. ASACOL [Concomitant]
     Route: 065
  10. HYDROCHLOROTHIAZIDE [Concomitant]
     Route: 065
  11. LOMOTIL [Concomitant]
     Route: 065
  12. DIOVAN [Concomitant]
     Route: 065
  13. VITAMIN B-12 [Concomitant]
     Route: 065

REACTIONS (4)
  - DECREASED APPETITE [None]
  - ANTINUCLEAR ANTIBODY POSITIVE [None]
  - WEIGHT DECREASED [None]
  - PANCYTOPENIA [None]
